FAERS Safety Report 7314847-5 (Version None)
Quarter: 2011Q1

REPORT INFORMATION
  Report Type: 
  Country: None (occurrence: None)
  Receive Date: 20110225
  Receipt Date: 20100119
  Transmission Date: 20110831
  Serious: No
  Sender: FDA-Public Use
  Company Number: US-MYLANLABS-2010S1000196

PATIENT
  Age: 21 Year
  Sex: Male
  Weight: 77.11 kg

DRUGS (3)
  1. AMNESTEEM [Suspect]
     Route: 048
     Dates: start: 20091203, end: 20091231
  2. AMNESTEEM [Suspect]
     Indication: ACNE CYSTIC
     Route: 048
     Dates: start: 20090908, end: 20091019
  3. COTRIM [Suspect]
     Indication: ACNE
     Route: 048
     Dates: start: 20090723, end: 20091231

REACTIONS (1)
  - MOOD ALTERED [None]
